FAERS Safety Report 24529523 (Version 4)
Quarter: 2024Q4

REPORT INFORMATION
  Report Type: Spontaneous
  Country: SE (occurrence: SE)
  Receive Date: 20241021
  Receipt Date: 20241218
  Transmission Date: 20250114
  Serious: No
  Sender: PFIZER
  Company Number: SE-PFIZER INC-202400281433

PATIENT

DRUGS (1)
  1. DEPO-PROVERA [Suspect]
     Active Substance: MEDROXYPROGESTERONE ACETATE
     Indication: Contraception
     Dosage: UNK

REACTIONS (1)
  - Needle issue [Unknown]
